FAERS Safety Report 9672883 (Version 2)
Quarter: 2014Q2

REPORT INFORMATION
  Report Type: Spontaneous
  Country: US (occurrence: US)
  Receive Date: 20131106
  Receipt Date: 20140602
  Transmission Date: 20141212
  Serious: No
  Sender: FDA-Public Use
  Company Number: US-AMGEN-USASP2013069661

PATIENT
  Age: 64 Year
  Sex: Female

DRUGS (3)
  1. ENBREL [Suspect]
     Indication: RHEUMATOID ARTHRITIS
     Dosage: 50 MG,EVERY 10 DAYS
     Route: 065
     Dates: start: 20070930
  2. ENBREL [Suspect]
     Route: 065
  3. METHOTREXATE [Concomitant]
     Dosage: 10 MG, QWK,  4   2.5 MG PILLS ONCE WEEKLY
     Route: 065

REACTIONS (11)
  - Dry mouth [Not Recovered/Not Resolved]
  - Musculoskeletal stiffness [Not Recovered/Not Resolved]
  - Alopecia [Not Recovered/Not Resolved]
  - White blood cell count abnormal [Recovered/Resolved]
  - Neutrophil count abnormal [Not Recovered/Not Resolved]
  - Stress [Recovered/Resolved]
  - Anxiety [Recovered/Resolved]
  - Depressed mood [Recovered/Resolved]
  - Irritability [Recovered/Resolved]
  - Emotional disorder [Recovered/Resolved]
  - Oral herpes [Recovered/Resolved]
